FAERS Safety Report 5833042-X (Version None)
Quarter: 2008Q3

REPORT INFORMATION
  Report Type: 
  Country: None (occurrence: None)
  Receive Date: 20080805
  Receipt Date: 20080728
  Transmission Date: 20090109
  Serious: Yes (Death, Other)
  Sender: FDA-Public Use
  Company Number: GB-ASTRAZENECA-2008GB00944

PATIENT
  Age: 59 Year
  Sex: Female

DRUGS (12)
  1. SEROQUEL [Suspect]
     Indication: SCHIZOPHRENIA
     Route: 048
  2. CYMBALTA [Suspect]
     Indication: SCHIZOPHRENIA
     Dosage: 30 MG
     Route: 065
     Dates: start: 20070706
  3. AMITRIPTYLINE HCL [Concomitant]
     Indication: PAIN
     Dosage: 20 MG
     Route: 065
  4. AMITRIPTYLINE HCL [Concomitant]
     Dosage: 10 MG
     Route: 065
  5. IBUPROFEN [Concomitant]
     Route: 065
  6. CHLORPHENIRAMINE MALEATE [Concomitant]
     Indication: PRURITUS
     Route: 048
     Dates: end: 20070701
  7. DEPIXOL [Concomitant]
     Route: 030
     Dates: end: 20070723
  8. DIAZEPAM [Concomitant]
     Dosage: 5 MG
     Route: 048
  9. GABAPENTIN [Concomitant]
     Route: 065
  10. LATANOPROST [Concomitant]
     Indication: GLAUCOMA
     Route: 065
  11. ACETYLSALICYLIC ACID WITH CAFFEINE [Concomitant]
  12. CLOPENTHIXOL [Concomitant]

REACTIONS (1)
  - DEATH [None]
